FAERS Safety Report 5162142-5 (Version None)
Quarter: 2006Q4

REPORT INFORMATION
  Report Type: 
  Country: None (occurrence: None)
  Receive Date: 20061120
  Receipt Date: 20061108
  Transmission Date: 20070319
  Serious: Yes (Hospitalization)
  Sender: FDA-Public Use
  Company Number: HQWYE236201SEP06

PATIENT
  Age: 44 Year
  Sex: Male

DRUGS (6)
  1. PANTOPRAZOLE SODIUM [Suspect]
     Dosage: ORAL
     Route: 048
     Dates: start: 20060617, end: 20060701
  2. PREDNISONE [Suspect]
     Indication: JUVENILE ARTHRITIS
     Dosage: 16.5 MG 1X PER 1 DAY ORAL
     Route: 048
     Dates: start: 20060617, end: 20060701
  3. ELAVIL [Suspect]
     Indication: DEPRESSION
     Dosage: 50 MG 1X PER 1 DAY ORAL
     Route: 048
     Dates: start: 19990101, end: 20060713
  4. LANSOPRAZOLE [Suspect]
     Dosage: ORAL
     Route: 048
     Dates: start: 20060617, end: 20060701
  5. PROZAC [Suspect]
     Indication: DEPRESSION
     Dosage: 20 MG 1X PER 1 DAY ORAL
     Route: 048
     Dates: start: 19990101, end: 20060713
  6. TERCIAN (CYAMEMAZINE,) [Suspect]
     Indication: DEPRESSION
     Dosage: 25 MG 1X PER 1 DAY ORAL
     Route: 048
     Dates: start: 19990101, end: 20060713

REACTIONS (10)
  - AUTOIMMUNE HEPATITIS [None]
  - C-REACTIVE PROTEIN INCREASED [None]
  - CHOLESTASIS [None]
  - CONDITION AGGRAVATED [None]
  - GRANULOMATOUS LIVER DISEASE [None]
  - HEPATIC ATROPHY [None]
  - HEPATIC STEATOSIS [None]
  - HEPATOCELLULAR DAMAGE [None]
  - INFLAMMATION [None]
  - JUVENILE ARTHRITIS [None]
